FAERS Safety Report 9647400 (Version 1)
Quarter: 2013Q4

REPORT INFORMATION
  Report Type: Spontaneous
  Country: CA (occurrence: CA)
  Receive Date: 20131028
  Receipt Date: 20131028
  Transmission Date: 20140711
  Serious: Yes (Hospitalization)
  Sender: FDA-Public Use
  Company Number: CA-ROCHE-1293936

PATIENT
  Age: 60 Year
  Sex: Female
  Weight: 66 kg

DRUGS (1)
  1. KETOROLAC [Suspect]
     Indication: PRODUCT USED FOR UNKNOWN INDICATION
     Dosage: FREQUENCY: ONCE; THERAPY DURATION: ONCE
     Route: 051

REACTIONS (4)
  - Back pain [Unknown]
  - Chest pain [Unknown]
  - Musculoskeletal pain [Unknown]
  - Neck pain [Unknown]
